FAERS Safety Report 20470431 (Version 3)
Quarter: 2022Q1

REPORT INFORMATION
  Report Type: Report from Study
  Country: KR (occurrence: KR)
  Receive Date: 20220214
  Receipt Date: 20220329
  Transmission Date: 20220423
  Serious: Yes (Death, Other)
  Sender: FDA-Public Use
  Company Number: KR-TAKEDA-2022TUS009539

PATIENT
  Age: 70 Year
  Sex: Female
  Weight: 35 kg

DRUGS (10)
  1. BRIGATINIB [Suspect]
     Active Substance: BRIGATINIB
     Indication: Non-small cell lung cancer
     Dosage: 90 MILLIGRAM, QD
     Route: 048
     Dates: start: 20210528, end: 20210607
  2. BRIGATINIB [Suspect]
     Active Substance: BRIGATINIB
     Dosage: 180 MILLIGRAM, QD
     Route: 048
     Dates: start: 20210608, end: 20220112
  3. LEVOTHYROXINE SODIUM [Concomitant]
     Active Substance: LEVOTHYROXINE SODIUM
     Indication: Hypothyroidism
     Dosage: 88 MICROGRAM
     Route: 048
     Dates: start: 2010, end: 20220209
  4. LIPITOR [Concomitant]
     Active Substance: ATORVASTATIN CALCIUM
     Indication: Hypothyroidism
     Dosage: 10 MILLIGRAM
     Route: 048
     Dates: start: 2010, end: 20220209
  5. PREDNISOLONE [Concomitant]
     Active Substance: PREDNISOLONE
     Indication: Arthralgia
     Dosage: 7.5 MILLIGRAM
     Route: 048
     Dates: start: 2010, end: 20220209
  6. ULTRACET ER SEMI [Concomitant]
     Indication: Arthralgia
     Dosage: UNK
     Route: 048
     Dates: start: 20210415, end: 20220209
  7. CELEBREX [Concomitant]
     Active Substance: CELECOXIB
     Indication: Arthralgia
     Dosage: 200 MILLIGRAM
     Route: 048
     Dates: start: 20210415, end: 20220209
  8. K CAB [Concomitant]
     Indication: Arthralgia
     Dosage: 50 MILLIGRAM
     Route: 048
     Dates: start: 20210415, end: 20220209
  9. REBAMIPIDE [Concomitant]
     Active Substance: REBAMIPIDE
     Indication: Arthralgia
     Dosage: 100 MILLIGRAM
     Route: 048
     Dates: start: 20210415, end: 20220209
  10. PIPERACILLIN SODIUM\TAZOBACTAM SODIUM [Concomitant]
     Active Substance: PIPERACILLIN SODIUM\TAZOBACTAM SODIUM
     Indication: Pneumonia
     Dosage: 18 GRAM
     Route: 042
     Dates: start: 20220115, end: 20220209

REACTIONS (1)
  - Myocardial infarction [Fatal]

NARRATIVE: CASE EVENT DATE: 20220112
